FAERS Safety Report 11546933 (Version 1)
Quarter: 2015Q3

REPORT INFORMATION
  Report Type: Report from Study
  Country: BR (occurrence: BR)
  Receive Date: 20150924
  Receipt Date: 20150924
  Transmission Date: 20151125
  Serious: Yes (Other)
  Sender: FDA-Public Use
  Company Number: BR-ABBVIE-15K-020-1466230-00

PATIENT
  Age: 38 Year
  Sex: Female
  Weight: 68 kg

DRUGS (1)
  1. HUMIRA [Suspect]
     Active Substance: ADALIMUMAB
     Indication: ANKYLOSING SPONDYLITIS
     Route: 058
     Dates: start: 20141114, end: 20150905

REACTIONS (9)
  - Diarrhoea [Recovered/Resolved]
  - Glaucoma [Not Recovered/Not Resolved]
  - Injection site swelling [Recovered/Resolved]
  - Vomiting [Recovered/Resolved]
  - Immunodeficiency [Unknown]
  - Hepatic neoplasm [Not Recovered/Not Resolved]
  - Nodule [Not Recovered/Not Resolved]
  - Uterine leiomyoma [Recovered/Resolved]
  - Psoriasis [Recovered/Resolved]

NARRATIVE: CASE EVENT DATE: 201506
